FAERS Safety Report 20807881 (Version 1)
Quarter: 2022Q2

REPORT INFORMATION
  Report Type: Spontaneous
  Country: US (occurrence: US)
  Receive Date: 20220510
  Receipt Date: 20220510
  Transmission Date: 20220721
  Serious: Yes (Other)
  Sender: FDA-Public Use
  Company Number: US-TAKEDA-2022TUS029339

PATIENT

DRUGS (7)
  1. NATPARA (PARATHYROID HORMONE) [Suspect]
     Active Substance: PARATHYROID HORMONE
     Indication: Post procedural hypoparathyroidism
     Dosage: UNK
     Route: 065
     Dates: start: 2014, end: 2019
  2. NATPARA (PARATHYROID HORMONE) [Suspect]
     Active Substance: PARATHYROID HORMONE
     Indication: Post procedural hypoparathyroidism
     Dosage: UNK
     Route: 065
     Dates: start: 2014, end: 2019
  3. NATPARA (PARATHYROID HORMONE) [Suspect]
     Active Substance: PARATHYROID HORMONE
     Indication: Post procedural hypoparathyroidism
     Dosage: UNK
     Route: 065
     Dates: start: 2014, end: 2019
  4. CALCIUM [Suspect]
     Active Substance: CALCIUM
     Indication: Blood calcium decreased
     Route: 065
  5. CALCIUM [Suspect]
     Active Substance: CALCIUM
     Dosage: 4800 MILLIGRAM, QD
     Route: 065
  6. CALCITRIOL [Suspect]
     Active Substance: CALCITRIOL
     Indication: Blood calcium decreased
     Route: 065
  7. CALCITRIOL [Suspect]
     Active Substance: CALCITRIOL
     Dosage: 0.5 MICROGRAM, BID
     Route: 065

REACTIONS (2)
  - Nephrolithiasis [Unknown]
  - Recalled product [Unknown]
